FAERS Safety Report 15782549 (Version 1)
Quarter: 2019Q1

REPORT INFORMATION
  Report Type: Report from Study
  Country: US (occurrence: US)
  Receive Date: 20190102
  Receipt Date: 20190102
  Transmission Date: 20190417
  Serious: Yes (Life-Threatening, Hospitalization, Other)
  Sender: FDA-Public Use
  Company Number: US-TORRENT-00007366

PATIENT
  Age: 32 Year

DRUGS (1)
  1. CARBAMAZEPINE. [Suspect]
     Active Substance: CARBAMAZEPINE
     Indication: PRODUCT USED FOR UNKNOWN INDICATION
     Dosage: IMMEDIATE RELEASE

REACTIONS (3)
  - Overdose [Unknown]
  - Toxicity to various agents [Unknown]
  - Unresponsive to stimuli [Unknown]
